FAERS Safety Report 7864445-X (Version None)
Quarter: 2011Q4

REPORT INFORMATION
  Report Type: 
  Country: None (occurrence: None)
  Receive Date: 20111028
  Receipt Date: 20111024
  Transmission Date: 20120403
  Serious: Yes (Death, Hospitalization)
  Sender: FDA-Public Use
  Company Number: PHHY2011DO86694

PATIENT
  Age: 90 Year
  Sex: Female

DRUGS (2)
  1. FORADIL [Suspect]
     Indication: ASTHMA
     Dosage: UNK UKN, PRN
  2. ANTIHYPERTENSIVE DRUGS [Concomitant]

REACTIONS (2)
  - PULMONARY CONGESTION [None]
  - CARDIAC ARREST [None]
